FAERS Safety Report 7740723-X (Version None)
Quarter: 2011Q3

REPORT INFORMATION
  Report Type: 
  Country: None (occurrence: None)
  Receive Date: 20110909
  Receipt Date: 20110902
  Transmission Date: 20111222
  Serious: Yes (Hospitalization)
  Sender: FDA-Public Use
  Company Number: GR-JNJFOC-20110902780

PATIENT
  Sex: Male

DRUGS (20)
  1. VELCADE [Suspect]
     Route: 042
  2. VELCADE [Suspect]
     Route: 042
  3. RAMIPRIL [Concomitant]
     Indication: HYPERTENSION
     Route: 065
     Dates: start: 20110824
  4. VELCADE [Suspect]
     Indication: MULTIPLE MYELOMA
     Route: 042
  5. DEXAMETHASONE [Suspect]
     Route: 048
  6. DOXORUBICIN HCL [Suspect]
     Route: 042
  7. DOXORUBICIN HCL [Suspect]
     Route: 042
  8. DOXORUBICIN HCL [Suspect]
     Route: 042
  9. DOXORUBICIN HCL [Suspect]
     Route: 042
  10. VELCADE [Suspect]
     Route: 042
  11. VELCADE [Suspect]
     Route: 042
     Dates: end: 20110802
  12. DOXORUBICIN HCL [Suspect]
     Route: 042
  13. DEXAMETHASONE [Suspect]
     Indication: MULTIPLE MYELOMA
     Route: 048
  14. DEXAMETHASONE [Suspect]
     Route: 048
  15. DEXAMETHASONE [Suspect]
     Route: 048
  16. DEXAMETHASONE [Suspect]
     Route: 048
     Dates: end: 20110802
  17. DOXORUBICIN HCL [Suspect]
     Indication: MULTIPLE MYELOMA
     Route: 042
     Dates: end: 20110802
  18. VELCADE [Suspect]
     Route: 042
  19. DEXAMETHASONE [Suspect]
     Route: 048
  20. NORVASC [Concomitant]
     Indication: HYPERTENSION
     Route: 065
     Dates: end: 20110823

REACTIONS (2)
  - OPTIC NEURITIS [None]
  - PAPILLOEDEMA [None]
